FAERS Safety Report 8196199-4 (Version None)
Quarter: 2012Q1

REPORT INFORMATION
  Report Type: 
  Country: None (occurrence: None)
  Receive Date: 20120307
  Receipt Date: 20120307
  Transmission Date: 20120608
  Serious: No
  Sender: FDA-Public Use
  Company Number: None

PATIENT
  Sex: Female
  Weight: 99.247 kg

DRUGS (2)
  1. ARANESP [Suspect]
     Indication: ANAEMIA
     Dosage: 100MCG EVERY 2 WEEKS S.C.
     Route: 058
     Dates: start: 20120109
  2. ARANESP [Suspect]
     Indication: ANAEMIA
     Dosage: 100MCG EVERY 2 WEEKS S.C
     Route: 058
     Dates: start: 20120127

REACTIONS (2)
  - CHEST DISCOMFORT [None]
  - ANXIETY [None]
